FAERS Safety Report 6223125-7 (Version None)
Quarter: 2009Q2

REPORT INFORMATION
  Report Type: 
  Country: None (occurrence: None)
  Receive Date: 20090611
  Receipt Date: 20090602
  Transmission Date: 20091009
  Serious: Yes (Other)
  Sender: FDA-Public Use
  Company Number: US-PFIZER INC-2009210864

PATIENT
  Sex: Male
  Weight: 150 kg

DRUGS (2)
  1. XALATAN [Suspect]
     Dosage: UNK
  2. TRAVATAN [Concomitant]
     Dosage: UNK

REACTIONS (6)
  - DEMENTIA ALZHEIMER'S TYPE [None]
  - DIABETES MELLITUS [None]
  - FOREIGN BODY SENSATION IN EYES [None]
  - HYPOTENSION [None]
  - VISION BLURRED [None]
  - WEIGHT DECREASED [None]
